FAERS Safety Report 16202662 (Version 1)
Quarter: 2019Q2

REPORT INFORMATION
  Report Type: Spontaneous
  Country: US (occurrence: US)
  Receive Date: 20190313
  Receipt Date: 20190313
  Transmission Date: 20190711
  Serious: No
  Sender: FDA-Public Use
  Company Number: None

PATIENT
  Age: 67 Year
  Sex: Female

DRUGS (1)
  1. SOFOSBUVIR/VELPATASVIR 400-100MG [Suspect]
     Active Substance: SOFOSBUVIR\VELPATASVIR
     Dates: start: 20190212

REACTIONS (4)
  - Diarrhoea [None]
  - Pruritus generalised [None]
  - Rash papular [None]
  - Rash erythematous [None]

NARRATIVE: CASE EVENT DATE: 20190313
